FAERS Safety Report 4317296-7 (Version None)
Quarter: 2004Q1

REPORT INFORMATION
  Report Type: 
  Country: None (occurrence: None)
  Receive Date: 20040315
  Receipt Date: 20040315
  Transmission Date: 20041129
  Serious: No
  Sender: FDA-Public Use
  Company Number: None

PATIENT
  Age: 56 Year
  Sex: Female
  Weight: 58.9676 kg

DRUGS (7)
  1. LITHIUM 300 MG PO Q AM [Suspect]
     Indication: BIPOLAR I DISORDER
     Dosage: 300 MG PO Q AM
     Route: 048
  2. LITHIUM 600 MG PO QHS [Suspect]
     Dosage: 600 MG PO QHS
  3. LISINOPRIL [Concomitant]
  4. RISPERIDONE [Concomitant]
  5. ASPIRIN [Concomitant]
  6. HUMALOG [Concomitant]
  7. METOPROLOL [Concomitant]

REACTIONS (4)
  - DEPRESSION [None]
  - DRUG LEVEL INCREASED [None]
  - FLUID INTAKE REDUCED [None]
  - MENTAL STATUS CHANGES [None]
